FAERS Safety Report 9548704 (Version 1)
Quarter: 2013Q2

REPORT INFORMATION
  Report Type: Spontaneous
  Country: None (occurrence: None)
  Receive Date: 20130617
  Receipt Date: 20130617
  Transmission Date: 20140414
  Serious: Yes (Life-Threatening, Hospitalization)
  Sender: FDA-Public Use
  Company Number: EUS-2013-00106

PATIENT
  Age: 3 Year
  Sex: Male

DRUGS (6)
  1. ERWINASE [Suspect]
     Indication: ACUTE LYMPHOCYTIC LEUKAEMIA
  2. VINCRISTINE (VINCRISTINE) (VINCRISTINE) [Concomitant]
  3. DOXORUBICIN (DOXORUBICIN) (DOXORUBICIN) [Concomitant]
  4. ARACYTINE (CYTARABINE) (CYTARABINE) [Concomitant]
  5. METHOTREXATE (METHOTREXATE) (METHOTREXATE) [Concomitant]
  6. DEXAMETHASONE (DEXAMETHASONE) (DEXAMETHASONE) [Concomitant]

REACTIONS (3)
  - Respiratory distress [None]
  - Urticaria [None]
  - Anaphylactic shock [None]
